FAERS Safety Report 21192435 (Version 1)
Quarter: 2022Q3

REPORT INFORMATION
  Report Type: Report from Study
  Country: FR (occurrence: FR)
  Receive Date: 20220809
  Receipt Date: 20220809
  Transmission Date: 20221027
  Serious: Yes (Hospitalization)
  Sender: FDA-Public Use
  Company Number: FR-GBT-015024

PATIENT
  Age: 26 Year
  Sex: Male

DRUGS (3)
  1. VOXELOTOR [Suspect]
     Active Substance: VOXELOTOR
     Indication: Product used for unknown indication
     Dates: start: 20220506
  2. OXBRYTA [Suspect]
     Active Substance: VOXELOTOR
  3. ASPIRIN [Concomitant]
     Active Substance: ASPIRIN

REACTIONS (1)
  - Vitello-intestinal duct remnant [Recovered/Resolved]

NARRATIVE: CASE EVENT DATE: 20220620
